FAERS Safety Report 6743337-3 (Version None)
Quarter: 2010Q2

REPORT INFORMATION
  Report Type: 
  Country: None (occurrence: None)
  Receive Date: 20100527
  Receipt Date: 20100512
  Transmission Date: 20101027
  Serious: Yes (Hospitalization, Other)
  Sender: FDA-Public Use
  Company Number: US-ELI_LILLY_AND_COMPANY-US201005005908

PATIENT
  Sex: Female

DRUGS (8)
  1. FORTEO [Suspect]
     Indication: OSTEOPOROSIS
     Dosage: 20 UG, DAILY (1/D)
     Dates: start: 20090301
  2. FORTEO [Suspect]
     Dosage: 20 UG, DAILY (1/D)
  3. DIPYRIDAMOL [Concomitant]
     Dosage: 50 MG, UNK
  4. ZOCOR [Concomitant]
     Dosage: 40 MG, UNK
  5. PREVACID [Concomitant]
     Dosage: 30 MG, UNK
  6. TRIAMTERENE AND HYDROCHLOROTHIAZIDE [Concomitant]
  7. BUPROPION HYDROCHLORIDE [Concomitant]
     Dosage: 300 MG, UNK
  8. ASPIRIN [Concomitant]
     Dosage: 325 MG, UNK

REACTIONS (2)
  - ANXIETY [None]
  - LUNG NEOPLASM [None]
